FAERS Safety Report 8215549-3 (Version None)
Quarter: 2012Q1

REPORT INFORMATION
  Report Type: 
  Country: None (occurrence: None)
  Receive Date: 20120316
  Receipt Date: 20120308
  Transmission Date: 20120608
  Serious: Yes (Death)
  Sender: FDA-Public Use
  Company Number: US-ROCHE-1047526

PATIENT
  Sex: Female

DRUGS (2)
  1. SOMATROPIN RDNA [Suspect]
     Indication: RENAL FAILURE
     Route: 065
  2. SOMATROPIN RDNA [Suspect]
     Indication: DIALYSIS

REACTIONS (1)
  - DEATH [None]
